FAERS Safety Report 6678151-0 (Version None)
Quarter: 2010Q2

REPORT INFORMATION
  Report Type: 
  Country: None (occurrence: None)
  Receive Date: 20100409
  Receipt Date: 20100409
  Transmission Date: 20101027
  Serious: Yes (Other)
  Sender: FDA-Public Use
  Company Number: None

PATIENT
  Age: 58 Year
  Sex: Female
  Weight: 79.5 kg

DRUGS (1)
  1. CYMBALTA [Suspect]
     Indication: COMPLEX REGIONAL PAIN SYNDROME
     Dosage: 30 MG ONCE DAILY ORAL
     Route: 048
     Dates: start: 20081001

REACTIONS (5)
  - ABNORMAL BEHAVIOUR [None]
  - ALOPECIA [None]
  - DRY MOUTH [None]
  - LIBIDO INCREASED [None]
  - PERSONALITY CHANGE [None]
